FAERS Safety Report 8447667-9 (Version None)
Quarter: 2012Q2

REPORT INFORMATION
  Report Type: 
  Country: None (occurrence: None)
  Receive Date: 20120619
  Receipt Date: 20120617
  Transmission Date: 20120825
  Serious: Yes (Other)
  Sender: FDA-Public Use
  Company Number: US-PFIZER INC-2012145264

PATIENT
  Sex: Female
  Weight: 84.8 kg

DRUGS (6)
  1. ZOLOFT [Suspect]
     Indication: AGITATION
     Dosage: 50 MG, DAILY AT NIGHT
     Route: 048
  2. LISINOPRIL [Concomitant]
     Indication: BLOOD PRESSURE ABNORMAL
     Dosage: UNK,DAILY
  3. ZOLOFT [Suspect]
     Indication: EMOTIONAL DISORDER
  4. LOVASTATIN [Concomitant]
     Indication: BLOOD CHOLESTEROL ABNORMAL
     Dosage: 40 MG, DAILY
  5. METOPROLOL [Concomitant]
     Indication: BLOOD PRESSURE ABNORMAL
     Dosage: UNK,DAILY
  6. METFORMIN [Concomitant]
     Indication: DIABETES MELLITUS
     Dosage: UNK,2X/DAY

REACTIONS (5)
  - SUICIDAL IDEATION [None]
  - ABNORMAL BEHAVIOUR [None]
  - MENTAL DISORDER [None]
  - EMOTIONAL DISORDER [None]
  - AGITATION [None]
